FAERS Safety Report 6044868-4 (Version None)
Quarter: 2009Q1

REPORT INFORMATION
  Report Type: 
  Country: None (occurrence: None)
  Receive Date: 20090121
  Receipt Date: 20090109
  Transmission Date: 20090719
  Serious: Yes (Hospitalization)
  Sender: FDA-Public Use
  Company Number: ES-CELGENEUS-144-21880-08111521

PATIENT
  Sex: Male
  Weight: 80 kg

DRUGS (8)
  1. REVLIMID [Suspect]
     Indication: MULTIPLE MYELOMA
     Route: 048
     Dates: start: 20080101, end: 20081101
  2. DEXAMETHASONE [Suspect]
     Indication: MULTIPLE MYELOMA
     Route: 048
     Dates: end: 20081101
  3. OMEPRAZOLE [Concomitant]
     Indication: DRUG USE FOR UNKNOWN INDICATION
     Route: 065
     Dates: start: 20080101, end: 20080101
  4. FRAXIPARIN [Concomitant]
     Indication: DRUG USE FOR UNKNOWN INDICATION
     Route: 058
     Dates: start: 20080101, end: 20080101
  5. EPREX [Concomitant]
     Indication: PROPHYLAXIS
     Route: 058
     Dates: start: 20080101, end: 20080101
  6. CALCIUM SANDOZ FORTE D [Concomitant]
     Indication: DRUG USE FOR UNKNOWN INDICATION
     Route: 065
     Dates: start: 20080101, end: 20080101
  7. PAMIDRONATE DISODIUM [Concomitant]
     Indication: DRUG USE FOR UNKNOWN INDICATION
     Route: 051
     Dates: start: 20080101, end: 20080101
  8. PAROXETINE HCL [Concomitant]
     Route: 048
     Dates: start: 20080101, end: 20080101

REACTIONS (4)
  - DRUG INEFFECTIVE [None]
  - HYPERGLYCAEMIA [None]
  - PANCREATITIS ACUTE [None]
  - RENAL FAILURE [None]
